FAERS Safety Report 21089849 (Version 1)
Quarter: 2022Q3

REPORT INFORMATION
  Report Type: Spontaneous
  Country: US (occurrence: US)
  Receive Date: 20220715
  Receipt Date: 20220715
  Transmission Date: 20221027
  Serious: Yes (Other)
  Sender: FDA-Public Use
  Company Number: US-BRISTOL-MYERS SQUIBB COMPANY-2022-071453

PATIENT
  Age: 57 Year
  Sex: Female

DRUGS (7)
  1. ORENCIA [Suspect]
     Active Substance: ABATACEPT
     Indication: Product used for unknown indication
     Route: 065
  2. ENBREL [Suspect]
     Active Substance: ETANERCEPT
     Indication: Rheumatoid arthritis
     Route: 065
     Dates: start: 20080730
  3. ENBREL [Suspect]
     Active Substance: ETANERCEPT
     Indication: Large granular lymphocytosis
     Route: 065
  4. ENBREL [Suspect]
     Active Substance: ETANERCEPT
     Route: 065
  5. ENBREL [Suspect]
     Active Substance: ETANERCEPT
     Route: 065
     Dates: start: 2019
  6. METHOTREXATE [Suspect]
     Active Substance: METHOTREXATE
     Indication: Product used for unknown indication
     Route: 065
  7. VIBRAMYCIN [DOXYCYCLINE HYDROCHLORIDE] [Concomitant]
     Indication: Product used for unknown indication
     Route: 065

REACTIONS (23)
  - Atypical pneumonia [Unknown]
  - Large granular lymphocytosis [Recovered/Resolved]
  - Rheumatoid arthritis [Not Recovered/Not Resolved]
  - Joint injury [Unknown]
  - Injection site swelling [Not Recovered/Not Resolved]
  - Oral candidiasis [Unknown]
  - Injection site pruritus [Recovered/Resolved]
  - Injection site pain [Not Recovered/Not Resolved]
  - Injection site reaction [Not Recovered/Not Resolved]
  - Injection site erythema [Not Recovered/Not Resolved]
  - Anaemia [Unknown]
  - Hypersensitivity [Not Recovered/Not Resolved]
  - Musculoskeletal stiffness [Recovered/Resolved]
  - Onychoclasis [Not Recovered/Not Resolved]
  - Blood blister [Not Recovered/Not Resolved]
  - Weight decreased [Not Recovered/Not Resolved]
  - Dental caries [Unknown]
  - Incorrect dose administered [Recovered/Resolved]
  - Product storage error [Unknown]
  - Fatigue [Unknown]
  - Pain [Unknown]
  - Blood pressure decreased [Unknown]
  - Thermal burn [Unknown]

NARRATIVE: CASE EVENT DATE: 20140401
